FAERS Safety Report 4705769-4 (Version None)
Quarter: 2005Q3

REPORT INFORMATION
  Report Type: 
  Country: None (occurrence: None)
  Receive Date: 20050701
  Receipt Date: 20050622
  Transmission Date: 20060218
  Serious: Yes (Hospitalization)
  Sender: FDA-Public Use
  Company Number: JP-MERCK-0506USA03634

PATIENT
  Age: 65 Year
  Sex: Male

DRUGS (8)
  1. FLUMARIN [Suspect]
     Indication: PNEUMONIA
     Route: 042
     Dates: start: 20050530, end: 20050531
  2. CARBENIN [Suspect]
     Indication: PNEUMONIA
     Route: 042
     Dates: start: 20050601, end: 20050604
  3. ZITHROMAC [Suspect]
     Indication: PNEUMONIA
     Route: 048
     Dates: start: 20050530, end: 20050531
  4. CRAVIT [Suspect]
     Route: 048
  5. ONON [Concomitant]
     Indication: ASTHMA
     Route: 048
  6. ONON [Concomitant]
     Indication: COUGH
     Route: 048
  7. COZAAR [Suspect]
     Indication: RENAL IMPAIRMENT
     Route: 048
     Dates: start: 20030101, end: 20050601
  8. COZAAR [Suspect]
     Indication: BLOOD PRESSURE MANAGEMENT
     Route: 048
     Dates: start: 20030101, end: 20050601

REACTIONS (2)
  - EOSINOPHILIA [None]
  - PNEUMONIA [None]
